FAERS Safety Report 19636521 (Version 1)
Quarter: 2021Q3

REPORT INFORMATION
  Report Type: Other
  Country: CA (occurrence: CA)
  Receive Date: 20210730
  Receipt Date: 20210730
  Transmission Date: 20211014
  Serious: Yes (Other)
  Sender: FDA-Public Use
  Company Number: CA-TOLMAR, INC.-21CA029178

PATIENT
  Age: 72 Year
  Sex: Male

DRUGS (3)
  1. ELIGARD [Suspect]
     Active Substance: LEUPROLIDE ACETATE
     Indication: PRODUCT USED FOR UNKNOWN INDICATION
     Dosage: UNK
  2. ERLEADA [Suspect]
     Active Substance: APALUTAMIDE
     Indication: HORMONE-DEPENDENT PROSTATE CANCER
     Dosage: 240 MILLIGRAM, QD
     Route: 048
  3. ERLEADA [Suspect]
     Active Substance: APALUTAMIDE
     Dosage: 120 MILLIGRAM, QD
     Route: 048

REACTIONS (2)
  - Hot flush [Not Recovered/Not Resolved]
  - Coronary artery disease [Not Recovered/Not Resolved]
